FAERS Safety Report 7097932-5 (Version None)
Quarter: 2010Q4

REPORT INFORMATION
  Report Type: 
  Country: None (occurrence: None)
  Receive Date: 20101104
  Receipt Date: 20101026
  Transmission Date: 20110411
  Serious: Yes (Other)
  Sender: FDA-Public Use
  Company Number: OMPQ-NO-1010S-0940

PATIENT
  Age: 56 Year
  Sex: Male

DRUGS (1)
  1. OMNIPAQUE 140 [Suspect]
     Indication: PRODUCT USED FOR UNKNOWN INDICATION
     Dosage: 50 ML, SINGLE DOSE, EXTRAVASATION
     Dates: start: 20100922, end: 20100922

REACTIONS (1)
  - INFUSION SITE EXTRAVASATION [None]
